FAERS Safety Report 6007593-1 (Version None)
Quarter: 2008Q4

REPORT INFORMATION
  Report Type: 
  Country: None (occurrence: None)
  Receive Date: 20081217
  Receipt Date: 20080513
  Transmission Date: 20090506
  Serious: No
  Sender: FDA-Public Use
  Company Number: US-ASTRAZENECA-2008UW10087

PATIENT
  Age: 69 Year
  Sex: Female

DRUGS (7)
  1. CRESTOR [Suspect]
     Route: 048
     Dates: start: 20080301
  2. CRESTOR [Suspect]
     Route: 048
     Dates: start: 20080401
  3. CHANTIX [Concomitant]
  4. PLAVIX [Concomitant]
  5. ASPIRIN [Concomitant]
  6. METOPROLOL TARTRATE [Concomitant]
  7. BONIVA [Concomitant]

REACTIONS (1)
  - EPISTAXIS [None]
